FAERS Safety Report 4551431-0 (Version None)
Quarter: 2005Q1

REPORT INFORMATION
  Report Type: 
  Country: None (occurrence: None)
  Receive Date: 20050104
  Receipt Date: 20041216
  Transmission Date: 20050727
  Serious: Yes (Life-Threatening, Hospitalization)
  Sender: FDA-Public Use
  Company Number: 2003-01506

PATIENT
  Age: 72 Year
  Sex: Male

DRUGS (1)
  1. IMMUCYST (BCG - IT (CONNAUGHT)) [Suspect]
     Indication: BLADDER CANCER
     Dosage: 53 CC (81.0 MG)
     Route: 043
     Dates: start: 20030704

REACTIONS (12)
  - BLADDER CANCER RECURRENT [None]
  - BLOOD BILIRUBIN INCREASED [None]
  - BOVINE TUBERCULOSIS [None]
  - CYTOLYTIC HEPATITIS [None]
  - DISSEMINATED TUBERCULOSIS [None]
  - GENERAL PHYSICAL HEALTH DETERIORATION [None]
  - HEPATITIS TOXIC [None]
  - LEUKOPENIA [None]
  - LUNG DISORDER [None]
  - RENAL FAILURE [None]
  - SEPTIC SHOCK [None]
  - THROMBOCYTOPENIA [None]
